FAERS Safety Report 5222486-5 (Version None)
Quarter: 2007Q1

REPORT INFORMATION
  Report Type: 
  Country: None (occurrence: None)
  Receive Date: 20070129
  Receipt Date: 20060719
  Transmission Date: 20070707
  Serious: Yes (Hospitalization)
  Sender: FDA-Public Use
  Company Number: US-BRISTOL-MYERS SQUIBB COMPANY-13450630

PATIENT
  Age: 82 Year
  Sex: Female
  Weight: 73 kg

DRUGS (2)
  1. CARDIOLITE [Suspect]
     Dates: start: 20060713, end: 20060714
  2. PERSANTINE [Suspect]
     Dates: start: 20060713

REACTIONS (2)
  - HYPERSENSITIVITY [None]
  - RASH [None]
